FAERS Safety Report 7952921-0 (Version None)
Quarter: 2011Q4

REPORT INFORMATION
  Report Type: 
  Country: None (occurrence: None)
  Receive Date: 20111201
  Receipt Date: 20111121
  Transmission Date: 20120403
  Serious: Yes (Hospitalization, Other)
  Sender: FDA-Public Use
  Company Number: US-ABBOTT-11P-163-0877132-00

PATIENT
  Sex: Male
  Weight: 83.536 kg

DRUGS (14)
  1. COQ10 [Concomitant]
     Indication: PRODUCT USED FOR UNKNOWN INDICATION
  2. CENTRUM VITAMIN [Concomitant]
     Indication: VITAMIN SUPPLEMENTATION
  3. NIASPAN [Suspect]
     Indication: LIPIDS INCREASED
     Dates: start: 20110101
  4. NEXIUM [Concomitant]
     Indication: PRODUCT USED FOR UNKNOWN INDICATION
  5. LIPITOR [Concomitant]
     Indication: PRODUCT USED FOR UNKNOWN INDICATION
  6. LOVAZZA [Concomitant]
     Indication: PRODUCT USED FOR UNKNOWN INDICATION
  7. ASPIRIN [Concomitant]
     Indication: PRODUCT USED FOR UNKNOWN INDICATION
  8. D3 [Concomitant]
     Indication: VITAMIN SUPPLEMENTATION
  9. CINNAMON [Concomitant]
     Indication: PRODUCT USED FOR UNKNOWN INDICATION
  10. MILK THISTLE [Concomitant]
     Indication: PRODUCT USED FOR UNKNOWN INDICATION
  11. MAGNESIUM SULFATE [Concomitant]
     Indication: MINERAL SUPPLEMENTATION
  12. UNKNOWN OTHER VITAMIN [Concomitant]
     Indication: VITAMIN SUPPLEMENTATION
  13. UNKNOWN CARDIAC MEDICATION [Concomitant]
     Indication: CARDIAC DISORDER
  14. UNKNOWN PROSTATE MEDICATION [Concomitant]
     Indication: PROSTATIC DISORDER

REACTIONS (8)
  - PALPITATIONS [None]
  - FLUSHING [None]
  - PARAESTHESIA [None]
  - SKIN WARM [None]
  - ERYTHEMA [None]
  - ATRIOVENTRICULAR BLOCK COMPLETE [None]
  - PRURITUS [None]
  - DYSPNOEA [None]
